FAERS Safety Report 8022299-5 (Version None)
Quarter: 2012Q1

REPORT INFORMATION
  Report Type: 
  Country: None (occurrence: None)
  Receive Date: 20120104
  Receipt Date: 20120102
  Transmission Date: 20120608
  Serious: Yes (Hospitalization)
  Sender: FDA-Public Use
  Company Number: PHHY2012FR000522

PATIENT
  Sex: Male

DRUGS (1)
  1. CLOZAPINE [Suspect]
     Dosage: 175 MG DAILY

REACTIONS (3)
  - COLITIS [None]
  - SEPTIC SHOCK [None]
  - SALIVARY HYPERSECRETION [None]
